FAERS Safety Report 9333934 (Version 1)
Quarter: 2013Q2

REPORT INFORMATION
  Report Type: Spontaneous
  Country: US (occurrence: US)
  Receive Date: 20130606
  Receipt Date: 20130606
  Transmission Date: 20140414
  Serious: No
  Sender: FDA-Public Use
  Company Number: US-AMGEN-USASP2013021002

PATIENT
  Age: 92 Year
  Sex: Female

DRUGS (2)
  1. PROLIA [Suspect]
     Indication: OSTEOPOROSIS
  2. ASPIRIN [Concomitant]

REACTIONS (4)
  - Toothache [Recovering/Resolving]
  - Chills [Unknown]
  - Blood disorder [Unknown]
  - Feeling abnormal [Unknown]
